FAERS Safety Report 12815452 (Version 2)
Quarter: 2017Q1

REPORT INFORMATION
  Report Type: Report from Study
  Country: MY (occurrence: MY)
  Receive Date: 20161005
  Receipt Date: 20170123
  Transmission Date: 20170428
  Serious: Yes (Death, Other)
  Sender: FDA-Public Use
  Company Number: PHHY2016MY135566

PATIENT
  Age: 23 Year
  Sex: Male

DRUGS (1)
  1. GLIVEC [Suspect]
     Active Substance: IMATINIB MESYLATE
     Indication: CHRONIC MYELOID LEUKAEMIA
     Dosage: 400 MG, UNK
     Route: 065

REACTIONS (7)
  - Blast crisis in myelogenous leukaemia [Unknown]
  - Neutropenic sepsis [Unknown]
  - Pulmonary haemorrhage [Fatal]
  - Aspergillus infection [Fatal]
  - Chloroma [Unknown]
  - White blood cell count increased [Unknown]
  - Drug resistance [Unknown]

NARRATIVE: CASE EVENT DATE: 20161202
